FAERS Safety Report 13724830 (Version 1)
Quarter: 2017Q3

REPORT INFORMATION
  Report Type: Spontaneous
  Country: CZ (occurrence: CZ)
  Receive Date: 20170706
  Receipt Date: 20170706
  Transmission Date: 20171127
  Serious: Yes (Life-Threatening)
  Sender: FDA-Public Use
  Company Number: CZ-MYLANLABS-2017M1040419

PATIENT

DRUGS (4)
  1. ZODAC [Suspect]
     Active Substance: CETIRIZINE HYDROCHLORIDE
     Indication: SUICIDAL IDEATION
     Dates: start: 20170604
  2. IBALGIN [Suspect]
     Active Substance: IBUPROFEN
     Indication: SUICIDAL IDEATION
     Dates: start: 20170604
  3. DESLORATADINE. [Suspect]
     Active Substance: DESLORATADINE
     Indication: SUICIDAL IDEATION
     Dates: start: 20170604
  4. STOPEX [Suspect]
     Active Substance: DEXTROMETHORPHAN HYDROBROMIDE
     Indication: SUICIDAL IDEATION
     Dates: start: 20170604

REACTIONS (2)
  - Intentional product misuse [Unknown]
  - Abdominal pain [Unknown]

NARRATIVE: CASE EVENT DATE: 20170604
